FAERS Safety Report 4833162-2 (Version None)
Quarter: 2005Q4

REPORT INFORMATION
  Report Type: 
  Country: None (occurrence: None)
  Receive Date: 20051117
  Receipt Date: 20051104
  Transmission Date: 20060501
  Serious: Yes (Other)
  Sender: FDA-Public Use
  Company Number: 2005066048

PATIENT
  Age: 61 Year
  Sex: Male
  Weight: 115.6672 kg

DRUGS (11)
  1. BEXTRA [Suspect]
     Indication: ARTHRALGIA
     Dosage: 10 MG (10 MG, 1 IN 1 D), ORAL
     Route: 048
     Dates: start: 20041001, end: 20050420
  2. CELEBREX [Suspect]
     Indication: ARTHRALGIA
  3. FLUOXETINE [Concomitant]
  4. ACIPHEX [Concomitant]
  5. AVAPRO [Concomitant]
  6. CRESTOR [Concomitant]
  7. GLUCOSAMINE (GLUCOSAMINE) [Concomitant]
  8. OMEGA 3 (FISH OIL) [Concomitant]
  9. MULTIVITAMIN [Concomitant]
  10. ASPIRIN [Concomitant]
  11. CHONDROITIN (CHONDROITIN SULFATE) [Concomitant]

REACTIONS (10)
  - EXOSTOSIS [None]
  - FACIAL PARESIS [None]
  - HYPOAESTHESIA [None]
  - INCREASED UPPER AIRWAY SECRETION [None]
  - PLANTAR FASCIITIS [None]
  - POSTNASAL DRIP [None]
  - SINUSITIS [None]
  - UPPER RESPIRATORY TRACT INFECTION [None]
  - WEIGHT DECREASED [None]
  - WEIGHT INCREASED [None]
